FAERS Safety Report 6663261-4 (Version None)
Quarter: 2010Q1

REPORT INFORMATION
  Report Type: 
  Country: None (occurrence: None)
  Receive Date: 20100331
  Receipt Date: 20100331
  Transmission Date: 20100710
  Serious: Yes (Hospitalization)
  Sender: FDA-Public Use
  Company Number: None

PATIENT
  Sex: Male
  Weight: 65.6 kg

DRUGS (6)
  1. CYTARABINE [Suspect]
     Dosage: 6300 MG
  2. DAUNORUBICIN HCL [Suspect]
     Dosage: 180 MG
  3. METHYLPREDNISOLONE [Suspect]
     Dosage: 2940 MG
  4. PEG-L ASPARAGINASE (K-H) [Suspect]
     Dosage: 4500 IU
  5. VINCRISTINE SULFATE [Suspect]
     Dosage: 8 MG
  6. ALLOPURINOL [Suspect]
     Dosage: 6300 MG

REACTIONS (2)
  - FEBRILE NEUTROPENIA [None]
  - PNEUMONIA FUNGAL [None]
